APPROVED DRUG PRODUCT: PHENYLEPHRINE HYDROCHLORIDE
Active Ingredient: PHENYLEPHRINE HYDROCHLORIDE
Strength: 10%
Dosage Form/Route: SOLUTION/DROPS;OPHTHALMIC
Application: N203510 | Product #002 | TE Code: AT
Applicant: PARAGON BIOTECK INC
Approved: Mar 21, 2013 | RLD: Yes | RS: Yes | Type: RX

PATENTS:
Patent 8859623 | Expires: Nov 14, 2033